FAERS Safety Report 9918621 (Version 1)
Quarter: 2014Q1

REPORT INFORMATION
  Report Type: Spontaneous
  Country: US (occurrence: US)
  Receive Date: 20140224
  Receipt Date: 20140224
  Transmission Date: 20141002
  Serious: Yes (Disabling)
  Sender: FDA-Public Use
  Company Number: US-GE HEALTHCARE MEDICAL DIAGNOSTICS-OSCN-PR-0810S-0569

PATIENT
  Age: 41 Year
  Sex: Male

DRUGS (2)
  1. OMNISCAN [Suspect]
     Indication: CONGENITAL CYSTIC KIDNEY DISEASE
     Dates: start: 20040707, end: 20040707
  2. OMNISCAN [Suspect]
     Indication: MENTAL STATUS CHANGES
     Dates: start: 20050829, end: 20050829

REACTIONS (1)
  - Nephrogenic systemic fibrosis [Not Recovered/Not Resolved]
